FAERS Safety Report 11275433 (Version 4)
Quarter: 2015Q4

REPORT INFORMATION
  Report Type: Spontaneous
  Country: GB (occurrence: GB)
  Receive Date: 20150716
  Receipt Date: 20151009
  Transmission Date: 20160304
  Serious: Yes (Hospitalization)
  Sender: FDA-Public Use
  Company Number: GB-ROCHE-1608845

PATIENT
  Sex: Female

DRUGS (1)
  1. HERCEPTIN [Suspect]
     Active Substance: TRASTUZUMAB
     Indication: BREAST CANCER METASTATIC
     Route: 058

REACTIONS (5)
  - Onychomalacia [Unknown]
  - Joint stiffness [Unknown]
  - Restless legs syndrome [Unknown]
  - Insomnia [Unknown]
  - Tremor [Not Recovered/Not Resolved]
